FAERS Safety Report 9736491 (Version 2)
Quarter: 2017Q3

REPORT INFORMATION
  Report Type: Spontaneous
  Country: US (occurrence: US)
  Receive Date: 20131206
  Receipt Date: 20170912
  Transmission Date: 20171128
  Serious: No
  Sender: FDA-Public Use
  Company Number: US-ASTRAZENECA-2013SE87022

PATIENT
  Sex: Male

DRUGS (3)
  1. ZOMIG ZMT [Suspect]
     Active Substance: ZOLMITRIPTAN
     Dosage: 2.5MG UNKNOWN
     Route: 048
  2. ZOMIG ZMT [Suspect]
     Active Substance: ZOLMITRIPTAN
     Dosage: 2.5MG UNKNOWN
     Route: 048
  3. ZOMIG ZMT [Suspect]
     Active Substance: ZOLMITRIPTAN
     Dosage: GENERIC2.5MG UNKNOWN
     Route: 048

REACTIONS (1)
  - Fatigue [Unknown]
